FAERS Safety Report 4355100-1 (Version None)
Quarter: 2004Q2

REPORT INFORMATION
  Report Type: 
  Country: None (occurrence: None)
  Receive Date: 20040504
  Receipt Date: 20040420
  Transmission Date: 20050107
  Serious: Yes (Death)
  Sender: FDA-Public Use
  Company Number: 200411399GDS

PATIENT
  Age: 3 Year
  Sex: Male

DRUGS (1)
  1. CHLORPHENIRAMINE+DEXTROMETHORPHAN+PSEUDOEPHEDRINE (CHLORPHENIRAMINE/PS [Suspect]

REACTIONS (4)
  - ACCIDENTAL OVERDOSE [None]
  - CARDIO-RESPIRATORY ARREST [None]
  - COMA [None]
  - MULTIPLE DRUG OVERDOSE [None]
